FAERS Safety Report 14467410 (Version 2)
Quarter: 2018Q1

REPORT INFORMATION
  Report Type: Spontaneous
  Country: IT (occurrence: IT)
  Receive Date: 20180131
  Receipt Date: 20180206
  Transmission Date: 20180509
  Serious: Yes (Other)
  Sender: FDA-Public Use
  Company Number: IT-AUROBINDO-AUR-APL-2018-003445

PATIENT
  Age: 16 Year
  Sex: Female

DRUGS (2)
  1. RAMIPRIL. [Suspect]
     Active Substance: RAMIPRIL
     Indication: INTENTIONAL SELF-INJURY
     Dosage: 5 DF, UNK
     Route: 048
     Dates: start: 20161006
  2. ATENOLOL. [Suspect]
     Active Substance: ATENOLOL
     Indication: INTENTIONAL SELF-INJURY
     Dosage: 5 DF, UNK
     Route: 048
     Dates: start: 20161006

REACTIONS (2)
  - Intentional self-injury [Recovering/Resolving]
  - Abdominal pain upper [Recovering/Resolving]

NARRATIVE: CASE EVENT DATE: 20161006
